FAERS Safety Report 5513769-X (Version None)
Quarter: 2007Q4

REPORT INFORMATION
  Report Type: 
  Country: None (occurrence: None)
  Receive Date: 20071113
  Receipt Date: 20071102
  Transmission Date: 20080405
  Serious: Yes (Hospitalization, Other)
  Sender: FDA-Public Use
  Company Number: PHBS2007PT18608

PATIENT
  Age: 53 Year
  Sex: Male

DRUGS (11)
  1. CYCLOSPORINE [Suspect]
     Indication: STEM CELL TRANSPLANT
     Dosage: 50 MG, Q12H
     Route: 065
  2. METHOTREXATE [Suspect]
     Indication: STEM CELL TRANSPLANT
     Route: 065
  3. FLUDARABINE [Concomitant]
     Indication: STEM CELL TRANSPLANT
  4. BUSULFAN [Concomitant]
     Indication: STEM CELL TRANSPLANT
  5. ENALAPRIL MALEATE [Concomitant]
     Dosage: 20 MG, QD
  6. BISOPROLOL FUMARATE [Concomitant]
     Dosage: 5 MG, QD
  7. SULFAMETHOXAZOLE AND TRIMETHOPRIM [Concomitant]
     Dosage: 960 MG, TIW
  8. ACYCLOVIR [Concomitant]
  9. MIANSERIN [Concomitant]
  10. FOLATE SODIUM [Concomitant]
  11. MAGNESIUM SULFATE [Concomitant]

REACTIONS (37)
  - 5'NUCLEOTIDASE INCREASED [None]
  - ACUTE GRAFT VERSUS HOST DISEASE IN SKIN [None]
  - ALANINE AMINOTRANSFERASE INCREASED [None]
  - ANAEMIA [None]
  - ANTI-PLATELET ANTIBODY POSITIVE [None]
  - ASPARTATE AMINOTRANSFERASE INCREASED [None]
  - BLOOD ALKALINE PHOSPHATASE INCREASED [None]
  - BLOOD BILIRUBIN INCREASED [None]
  - BLOOD BILIRUBIN UNCONJUGATED INCREASED [None]
  - BLOOD CREATININE INCREASED [None]
  - BLOOD LACTATE DEHYDROGENASE INCREASED [None]
  - BLOOD UREA INCREASED [None]
  - CHRONIC GRAFT VERSUS HOST DISEASE [None]
  - COOMBS DIRECT TEST POSITIVE [None]
  - CYTOMEGALOVIRUS INFECTION [None]
  - DEEP VEIN THROMBOSIS [None]
  - DIPLOPIA [None]
  - DRY EYE [None]
  - DRY MOUTH [None]
  - EYE PAIN [None]
  - GAMMA-GLUTAMYLTRANSFERASE INCREASED [None]
  - GENERALISED OEDEMA [None]
  - HAPTOGLOBIN DECREASED [None]
  - HYPERCHOLESTEROLAEMIA [None]
  - HYPOALBUMINAEMIA [None]
  - LICHENOID KERATOSIS [None]
  - MENINGIOMA [None]
  - NEPHROTIC SYNDROME [None]
  - POIKILODERMA [None]
  - PROTEINURIA [None]
  - RASH MACULO-PAPULAR [None]
  - RENAL FAILURE ACUTE [None]
  - RENAL TUBULAR NECROSIS [None]
  - RETICULOCYTOSIS [None]
  - SKIN HYPERTROPHY [None]
  - THROMBOCYTOPENIA [None]
  - URINE ANALYSIS ABNORMAL [None]
